FAERS Safety Report 7016571-5 (Version None)
Quarter: 2010Q3

REPORT INFORMATION
  Report Type: 
  Country: None (occurrence: None)
  Receive Date: 20100927
  Receipt Date: 20100920
  Transmission Date: 20110219
  Serious: Yes (Life-Threatening, Hospitalization)
  Sender: FDA-Public Use
  Company Number: A0883041A

PATIENT
  Sex: Female
  Weight: 65 kg

DRUGS (1)
  1. LAMICTAL [Suspect]
     Dates: start: 20100825, end: 20100915

REACTIONS (7)
  - ABDOMINAL PAIN UPPER [None]
  - CONTUSION [None]
  - DRUG ADMINISTRATION ERROR [None]
  - LYMPHADENOPATHY [None]
  - PYREXIA [None]
  - RASH [None]
  - RESUSCITATION [None]
